FAERS Safety Report 18610580 (Version 1)
Quarter: 2020Q4

REPORT INFORMATION
  Report Type: Spontaneous
  Country: AT (occurrence: AT)
  Receive Date: 20201214
  Receipt Date: 20201214
  Transmission Date: 20210114
  Serious: Yes (Hospitalization)
  Sender: FDA-Public Use
  Company Number: AT-TEVA-2020-AT-1857154

PATIENT
  Age: 48 Year
  Sex: Male

DRUGS (8)
  1. LYRICA [Suspect]
     Active Substance: PREGABALIN
     Indication: ANXIETY DISORDER
     Dosage: 1/1/1/0, 225 MG
     Dates: end: 202008
  2. EFECTIN ER KPS 150 MG [Suspect]
     Active Substance: VENLAFAXINE HYDROCHLORIDE
     Indication: ANXIETY DISORDER
     Dosage: 150 MILLIGRAM DAILY; 1/0/0/0
     Dates: end: 202008
  3. CONCOR COR 5 MG [Suspect]
     Active Substance: BISOPROLOL FUMARATE
     Indication: BLOOD PRESSURE INCREASED
     Dosage: 1/0/1/0, 10 MG
     Dates: end: 20200619
  4. RIVACOR 10 MG [Suspect]
     Active Substance: BISOPROLOL FUMARATE
     Indication: BLOOD PRESSURE INCREASED
  5. BISOPROLOL [Suspect]
     Active Substance: BISOPROLOL
     Indication: HEART RATE INCREASED
     Dosage: UNK
     Route: 065
  6. CONCOR COR 5 MG [Suspect]
     Active Substance: BISOPROLOL FUMARATE
     Indication: HEART RATE INCREASED
     Dosage: 5 MG
  7. MIRTEL 30 MG (MIRTAZAPINE) [Suspect]
     Active Substance: MIRTAZAPINE
     Indication: ANXIETY DISORDER
     Dosage: 30 MILLIGRAM DAILY; 0/0/0/1
     Dates: end: 202006
  8. IVACORLAN 5MG [Suspect]
     Active Substance: IVABRADINE OXALATE
     Indication: BLOOD PRESSURE INCREASED
     Dosage: 1/0/1/0, 10 MG
     Dates: start: 20200620, end: 20200731

REACTIONS (10)
  - Food craving [Unknown]
  - Psoriasis [Recovering/Resolving]
  - Blister [Recovering/Resolving]
  - Drug eruption [Recovering/Resolving]
  - Eczema [Recovering/Resolving]
  - Dermatitis [Recovering/Resolving]
  - Skin exfoliation [Recovering/Resolving]
  - Rash [Recovering/Resolving]
  - Weight increased [Unknown]
  - Skin disorder [Recovering/Resolving]

NARRATIVE: CASE EVENT DATE: 2020
